FAERS Safety Report 25543277 (Version 1)
Quarter: 2025Q3

REPORT INFORMATION
  Report Type: Spontaneous
  Country: BN (occurrence: BN)
  Receive Date: 20250711
  Receipt Date: 20250711
  Transmission Date: 20251021
  Serious: Yes (Hospitalization)
  Sender: CADILA
  Company Number: BN-CPL-005524

PATIENT
  Age: 56 Year
  Sex: Female

DRUGS (3)
  1. ROSUVASTATIN [Interacting]
     Active Substance: ROSUVASTATIN
     Indication: Hypercholesterolaemia
     Dates: start: 20241231, end: 202502
  2. OMEPRAZOLE [Interacting]
     Active Substance: OMEPRAZOLE
     Dates: start: 202412
  3. FUROSEMIDE [Interacting]
     Active Substance: FUROSEMIDE
     Indication: Diuretic therapy
     Dates: start: 202412

REACTIONS (6)
  - Rhabdomyolysis [Recovering/Resolving]
  - Dermatomyositis [Recovering/Resolving]
  - Alanine aminotransferase increased [Unknown]
  - Acute kidney injury [Recovering/Resolving]
  - Idiopathic inflammatory myopathy [Recovering/Resolving]
  - Drug interaction [Recovering/Resolving]

NARRATIVE: CASE EVENT DATE: 20250101
